FAERS Safety Report 8281481-2 (Version None)
Quarter: 2012Q2

REPORT INFORMATION
  Report Type: 
  Country: None (occurrence: None)
  Receive Date: 20120413
  Receipt Date: 20120410
  Transmission Date: 20120825
  Serious: Yes (Death)
  Sender: FDA-Public Use
  Company Number: US-PFIZER INC-2012090479

PATIENT
  Age: 50 Year
  Sex: Female

DRUGS (3)
  1. LUNESTA [Suspect]
     Dosage: UNK
     Route: 048
  2. XANAX [Suspect]
     Dosage: UNK
  3. OXYCONTIN [Suspect]
     Dosage: UNK

REACTIONS (1)
  - COMPLETED SUICIDE [None]
